FAERS Safety Report 16891842 (Version 2)
Quarter: 2019Q4

REPORT INFORMATION
  Report Type: Report from Study
  Country: US (occurrence: US)
  Receive Date: 20191007
  Receipt Date: 20191015
  Transmission Date: 20200122
  Serious: Yes (Other)
  Sender: FDA-Public Use
  Company Number: US-JAZZ-2018-US-018581

PATIENT
  Age: 56 Year
  Sex: Female
  Weight: 78.46 kg

DRUGS (8)
  1. LUNESTA [Concomitant]
     Active Substance: ESZOPICLONE
  2. ABILIFY [Concomitant]
     Active Substance: ARIPIPRAZOLE
  3. MODAFINIL. [Concomitant]
     Active Substance: MODAFINIL
  4. XYREM [Suspect]
     Active Substance: SODIUM OXYBATE
     Dosage: 4.5 G, BID
     Route: 048
     Dates: start: 20190104
  5. RITALIN [Concomitant]
     Active Substance: METHYLPHENIDATE HYDROCHLORIDE
     Dosage: 20 MG, TID
  6. XYREM [Suspect]
     Active Substance: SODIUM OXYBATE
     Dosage: 3.75 G, BID
     Route: 048
     Dates: end: 20190103
  7. PIROXICAM. [Concomitant]
     Active Substance: PIROXICAM
  8. XYREM [Suspect]
     Active Substance: SODIUM OXYBATE
     Indication: NARCOLEPSY
     Dosage: 2.25 G, BID
     Route: 048
     Dates: start: 20181215

REACTIONS (6)
  - Sleep apnoea syndrome [Not Recovered/Not Resolved]
  - Nasopharyngitis [Unknown]
  - Abdominal discomfort [Unknown]
  - Cough [Unknown]
  - Nausea [Recovered/Resolved]
  - Headache [Unknown]

NARRATIVE: CASE EVENT DATE: 201812
